FAERS Safety Report 8521335-7 (Version None)
Quarter: 2012Q3

REPORT INFORMATION
  Report Type: 
  Country: None (occurrence: None)
  Receive Date: 20120712
  Receipt Date: 20120712
  Transmission Date: 20120928
  Serious: Yes (Hospitalization)
  Sender: FDA-Public Use
  Company Number: None

PATIENT
  Sex: Female
  Weight: 60 kg

DRUGS (8)
  1. ASPIRIN [Suspect]
     Dosage: 81MG DAILY PO LONG-TERM
     Route: 048
  2. OMEPRAZOLE [Concomitant]
  3. LISINOPRIL [Concomitant]
  4. POTASSIUM CHLORIDE [Concomitant]
  5. LASIX [Concomitant]
  6. VERAPAMIL [Concomitant]
  7. XARELTO [Suspect]
     Indication: ATRIAL FIBRILLATION
     Dosage: 15MG DAILY PO
     Route: 048
     Dates: start: 20120613, end: 20120629
  8. CRESTOR [Concomitant]

REACTIONS (3)
  - HAEMATOCHEZIA [None]
  - DIZZINESS [None]
  - ASTHENIA [None]
